FAERS Safety Report 16964317 (Version 1)
Quarter: 2019Q4

REPORT INFORMATION
  Report Type: Spontaneous
  Country: US (occurrence: US)
  Receive Date: 20190909
  Receipt Date: 20190909
  Transmission Date: 20200122
  Serious: Yes (Hospitalization)
  Sender: FDA-Public Use
  Company Number: None

PATIENT
  Age: 37 Year
  Sex: Female

DRUGS (2)
  1. NEUPOGEN [Suspect]
     Active Substance: FILGRASTIM
     Indication: SOFT TISSUE SARCOMA
     Dosage: ?          OTHER STRENGTH:480 MCG?0.8ML;?
     Route: 058
     Dates: start: 20190808
  2. NEUPOGEN [Suspect]
     Active Substance: FILGRASTIM
     Indication: NEOPLASM MALIGNANT
     Dosage: ?          OTHER STRENGTH:480 MCG?0.8ML;?
     Route: 058
     Dates: start: 20190808

REACTIONS (1)
  - Leukocytosis [None]

NARRATIVE: CASE EVENT DATE: 201908
